FAERS Safety Report 10720082 (Version 1)
Quarter: 2015Q1

REPORT INFORMATION
  Report Type: Spontaneous
  Country: US (occurrence: US)
  Receive Date: 20150119
  Receipt Date: 20150119
  Transmission Date: 20150721
  Serious: No
  Sender: FDA-Public Use
  Company Number: US-UNITED THERAPEUTICS-UNT-2014-006872

PATIENT
  Age: 39 Year
  Sex: Female
  Weight: 108.84 kg

DRUGS (2)
  1. TRACLEER [Concomitant]
     Active Substance: BOSENTAN\BOSENTAN MONOHYDRATE
     Indication: PRODUCT USED FOR UNKNOWN INDICATION
  2. REMODULIN [Suspect]
     Active Substance: TREPROSTINIL
     Indication: COR PULMONALE CHRONIC
     Dosage: 0.002 ?G/KG/MIN, CONTINUING
     Route: 041
     Dates: start: 20140815

REACTIONS (6)
  - Dyspnoea [Unknown]
  - Migraine [Unknown]
  - Cyanosis [Recovering/Resolving]
  - Oedema peripheral [Unknown]
  - Back pain [Unknown]
  - Heart rate increased [Unknown]

NARRATIVE: CASE EVENT DATE: 201408
